FAERS Safety Report 9727509 (Version 1)
Quarter: 2013Q4

REPORT INFORMATION
  Report Type: Spontaneous
  Country: US (occurrence: US)
  Receive Date: 20131203
  Receipt Date: 20131203
  Transmission Date: 20140711
  Serious: Yes (Other)
  Sender: FDA-Public Use
  Company Number: US-GILEAD-2008-0016953

PATIENT
  Age: 55 Year
  Sex: Male

DRUGS (5)
  1. VIREAD [Suspect]
     Indication: HIV INFECTION
  2. TOPROL XL [Concomitant]
     Indication: HYPERTENSION
  3. EPIVIR [Concomitant]
     Indication: HIV INFECTION
  4. PREZISTA [Concomitant]
     Indication: HIV INFECTION
  5. FUZEON [Concomitant]
     Indication: HIV INFECTION

REACTIONS (1)
  - Blood creatinine increased [Unknown]
